FAERS Safety Report 19263873 (Version 1)
Quarter: 2021Q2

REPORT INFORMATION
  Report Type: Spontaneous
  Country: US (occurrence: US)
  Receive Date: 20210514
  Receipt Date: 20210514
  Transmission Date: 20210717
  Serious: No
  Sender: FDA-Public Use
  Company Number: None

PATIENT
  Age: 25 Year
  Weight: 72.5 kg

DRUGS (9)
  1. OMEPRAZOLE. [Concomitant]
     Active Substance: OMEPRAZOLE
  2. ZOFRAN [Concomitant]
     Active Substance: ONDANSETRON HYDROCHLORIDE
  3. ERGOCALCIFEROL. [Concomitant]
     Active Substance: ERGOCALCIFEROL
  4. AFINITOR [Suspect]
     Active Substance: EVEROLIMUS
     Indication: NERVOUS SYSTEM NEOPLASM BENIGN
     Route: 048
     Dates: start: 20210325
  5. KOSELUGO [Concomitant]
     Active Substance: SELUMETINIB
  6. DEXAMETHASONE. [Concomitant]
     Active Substance: DEXAMETHASONE
  7. DOXYCYCLINE HYCLATE. [Concomitant]
     Active Substance: DOXYCYCLINE HYCLATE
  8. TRIAMCINOLONE ACETONIDE. [Concomitant]
     Active Substance: TRIAMCINOLONE ACETONIDE
  9. LOPERAMIDE HCL [Concomitant]
     Active Substance: LOPERAMIDE HYDROCHLORIDE

REACTIONS (2)
  - Rash [None]
  - Stomatitis [None]

NARRATIVE: CASE EVENT DATE: 20210426
